FAERS Safety Report 5595580-7 (Version None)
Quarter: 2008Q1

REPORT INFORMATION
  Report Type: 
  Country: None (occurrence: None)
  Receive Date: 20080118
  Receipt Date: 20080111
  Transmission Date: 20080703
  Serious: Yes (Other)
  Sender: FDA-Public Use
  Company Number: PHHY2008JP00659

PATIENT
  Age: 67 Year
  Sex: Female

DRUGS (1)
  1. ZOMETA [Suspect]
     Indication: METASTASES TO BONE
     Route: 041
     Dates: start: 20070723, end: 20071211

REACTIONS (4)
  - ABSCESS DRAINAGE [None]
  - ABSCESS MANAGEMENT [None]
  - BONE SWELLING [None]
  - OSTEONECROSIS [None]
